FAERS Safety Report 7913527-2 (Version None)
Quarter: 2011Q4

REPORT INFORMATION
  Report Type: 
  Country: None (occurrence: None)
  Receive Date: 20111110
  Receipt Date: 20111031
  Transmission Date: 20120403
  Serious: Yes (Other)
  Sender: FDA-Public Use
  Company Number: SP03152

PATIENT
  Age: 48 Year
  Sex: Female
  Weight: 74.8435 kg

DRUGS (11)
  1. SEROQUEL [Concomitant]
  2. LISINOPRIL [Concomitant]
  3. PROZAC [Concomitant]
  4. NASONEX [Concomitant]
  5. ZYRTEC [Concomitant]
  6. EPIPEN [Concomitant]
  7. SINGULAIR [Concomitant]
  8. METFORMIN HCL [Concomitant]
  9. NORVASC [Concomitant]
  10. AMITRIPTYLINE HCL [Concomitant]
  11. XIFAXAN [Suspect]
     Indication: IRRITABLE BOWEL SYNDROME
     Dosage: ORAL
     Route: 048
     Dates: start: 20101001, end: 20101001

REACTIONS (1)
  - ANGIOEDEMA [None]
